FAERS Safety Report 10214481 (Version 1)
Quarter: 2014Q2

REPORT INFORMATION
  Report Type: Spontaneous
  Country: US (occurrence: None)
  Receive Date: 20140602
  Receipt Date: 20140602
  Transmission Date: 20141212
  Serious: Yes (Other)
  Sender: FDA-Public Use
  Company Number: None

PATIENT
  Age: 47 Year
  Sex: Female
  Weight: 103 kg

DRUGS (8)
  1. REMICADE [Suspect]
     Indication: PSORIATIC ARTHROPATHY
     Dosage: 500MG ?WK 0,2,4 THEN Q 8?INTRAVENOUS
     Route: 042
     Dates: start: 20140527, end: 20140527
  2. METHOTREXATE [Concomitant]
  3. FOLIC ACID [Concomitant]
  4. VITAMIN D [Concomitant]
  5. LISINOPRIL [Concomitant]
  6. MEFORMIN [Concomitant]
  7. AMLODIPINE [Concomitant]
  8. HYDROCHLORATHIAZIDE [Concomitant]

REACTIONS (8)
  - Dyspnoea [None]
  - Flushing [None]
  - Nausea [None]
  - Vomiting [None]
  - Diarrhoea [None]
  - Chills [None]
  - Hypertension [None]
  - Hypersensitivity [None]
